FAERS Safety Report 7669254-2 (Version None)
Quarter: 2011Q3

REPORT INFORMATION
  Report Type: 
  Country: None (occurrence: None)
  Receive Date: 20110808
  Receipt Date: 20110729
  Transmission Date: 20111222
  Serious: Yes (Other)
  Sender: FDA-Public Use
  Company Number: PHHY2011JP54870

PATIENT
  Sex: Male
  Weight: 81 kg

DRUGS (10)
  1. DECADRON [Concomitant]
     Dosage: 1 MG, UNK
     Route: 048
     Dates: start: 20091029
  2. AMARYL [Concomitant]
     Dosage: 1 MG, UNK
     Route: 048
     Dates: start: 20110204
  3. GLIMICRON [Concomitant]
     Dosage: 40 MG, UNK
     Route: 048
     Dates: start: 20100305
  4. CANDESARTAN CILEXETIL [Concomitant]
     Dosage: 8 MG, UNK
     Route: 048
     Dates: start: 20090407
  5. FAMOTIDINE [Concomitant]
     Dosage: 20 MG, UNK
     Route: 048
     Dates: start: 20100305
  6. ZOMETA [Suspect]
     Indication: METASTASES TO BONE
     Dosage: 4 MG, UNK
     Route: 041
     Dates: start: 20081226, end: 20110427
  7. METFORMIN HCL [Concomitant]
     Dosage: 250 MG, UNK
     Route: 048
     Dates: start: 20081224
  8. ESTRACYT [Concomitant]
     Dosage: 626.8 MG, UNK
     Route: 048
     Dates: start: 20090427
  9. SITAGLIPTIN PHOSPHATE [Concomitant]
     Dosage: 50 MG, UNK
     Route: 048
     Dates: start: 20110204
  10. DUTASTERIDE [Concomitant]
     Dosage: 0.5 MG, UNK
     Route: 048
     Dates: start: 20110107

REACTIONS (1)
  - OSTEONECROSIS OF JAW [None]
